FAERS Safety Report 24189261 (Version 1)
Quarter: 2024Q3

REPORT INFORMATION
  Report Type: Spontaneous
  Country: US (occurrence: US)
  Receive Date: 20240808
  Receipt Date: 20240808
  Transmission Date: 20241017
  Serious: No
  Sender: LEO PHARM
  Company Number: US-LEO Pharma-372579

PATIENT
  Age: 76 Year
  Sex: Female

DRUGS (2)
  1. ADBRY [Suspect]
     Active Substance: TRALOKINUMAB-LDRM
     Indication: Dermatitis atopic
     Route: 058
  2. ADBRY [Suspect]
     Active Substance: TRALOKINUMAB-LDRM
     Indication: Dermatitis atopic
     Dosage: 600 MG ON DAY 1 THEN AT 300 MG EVERY OTHER WEEK; TREATMENT REPORTED AS ONGOING.
     Route: 058
     Dates: start: 20240727

REACTIONS (4)
  - Injection site erythema [Recovered/Resolved]
  - Muscle strain [Unknown]
  - Injection site rash [Recovered/Resolved]
  - Fall [Unknown]
